FAERS Safety Report 18188311 (Version 5)
Quarter: 2020Q4

REPORT INFORMATION
  Report Type: Report from Study
  Country: US (occurrence: US)
  Receive Date: 20200824
  Receipt Date: 20201103
  Transmission Date: 20210113
  Serious: Yes (Congenital Anomaly, Other)
  Sender: FDA-Public Use
  Company Number: US-VIIV HEALTHCARE LIMITED-US2020GSK167097

PATIENT
  Sex: Male
  Weight: 3 kg

DRUGS (5)
  1. ZIDOVUDINE. [Suspect]
     Active Substance: ZIDOVUDINE
     Indication: HIV INFECTION
     Dosage: 1 MG/KG
     Route: 064
     Dates: start: 20200729, end: 20200729
  2. REYATAZ [Suspect]
     Active Substance: ATAZANAVIR SULFATE
     Dosage: 400 MG, QD
     Route: 064
     Dates: start: 20200522
  3. NORVIR [Suspect]
     Active Substance: RITONAVIR
     Indication: HIV INFECTION
     Dosage: 100 MG, QD
     Route: 064
     Dates: start: 20191127
  4. TRUVADA [Suspect]
     Active Substance: EMTRICITABINE\TENOFOVIR DISOPROXIL FUMARATE
     Indication: HIV INFECTION
     Dosage: 500 MG, QD
     Route: 064
     Dates: start: 20191127
  5. REYATAZ [Suspect]
     Active Substance: ATAZANAVIR SULFATE
     Indication: HIV INFECTION
     Dosage: 300 MG, QD
     Route: 064
     Dates: start: 20191127, end: 20200521

REACTIONS (2)
  - Penoscrotal fusion [Unknown]
  - Foetal exposure during pregnancy [Unknown]
